FAERS Safety Report 5558026-0 (Version None)
Quarter: 2007Q4

REPORT INFORMATION
  Report Type: 
  Country: None (occurrence: None)
  Receive Date: 20071214
  Receipt Date: 20071128
  Transmission Date: 20080405
  Serious: Yes (Hospitalization)
  Sender: FDA-Public Use
  Company Number: US-RANBAXY-2007RR-10918

PATIENT

DRUGS (3)
  1. BISACODYL [Suspect]
  2. MAGNESIUM CITRATE [Suspect]
  3. POLYETHYLENE GLYCOL [Suspect]

REACTIONS (1)
  - MALLORY-WEISS SYNDROME [None]
